FAERS Safety Report 14497949 (Version 1)
Quarter: 2018Q1

REPORT INFORMATION
  Report Type: Spontaneous
  Country: US (occurrence: US)
  Receive Date: 20180207
  Receipt Date: 20180207
  Transmission Date: 20180509
  Serious: No
  Sender: FDA-Public Use
  Company Number: US-SERB S.A.S.-2041568

PATIENT
  Age: 28 Year
  Sex: Male
  Weight: 91 kg

DRUGS (2)
  1. CYANOKIT [Suspect]
     Active Substance: HYDROXOCOBALAMIN
     Indication: VASOPLEGIA SYNDROME
     Route: 042
  2. NOREPINEPHRINE. [Concomitant]
     Active Substance: NOREPINEPHRINE
     Route: 042

REACTIONS (1)
  - Product use in unapproved indication [Recovered/Resolved]
